FAERS Safety Report 16094019 (Version 1)
Quarter: 2019Q1

REPORT INFORMATION
  Report Type: Spontaneous
  Country: US (occurrence: US)
  Receive Date: 20190226
  Receipt Date: 20190226
  Transmission Date: 20190418
  Serious: No
  Sender: FDA-Public Use
  Company Number: None

PATIENT
  Age: 70 Year
  Sex: Female

DRUGS (1)
  1. MAVYRET [Suspect]
     Active Substance: GLECAPREVIR\PIBRENTASVIR
     Dosage: ?          OTHER DOSE:300MG-120MG;?
     Route: 058
     Dates: start: 201902

REACTIONS (2)
  - Rash [None]
  - Dyspnoea [None]

NARRATIVE: CASE EVENT DATE: 20190226
